FAERS Safety Report 4951917-0 (Version None)
Quarter: 2006Q1

REPORT INFORMATION
  Report Type: 
  Country: None (occurrence: None)
  Receive Date: 20060320
  Receipt Date: 20060306
  Transmission Date: 20060701
  Serious: Yes (Life-Threatening, Hospitalization)
  Sender: FDA-Public Use
  Company Number: 2006033610

PATIENT
  Age: 52 Year
  Sex: Male
  Weight: 92 kg

DRUGS (7)
  1. DOXORUBICIN HCL [Suspect]
     Indication: HODGKIN'S DISEASE STAGE III
     Dosage: 55 MG, INTRAVENOUS
     Route: 042
     Dates: start: 20060110
  2. ETOPOSIDE [Suspect]
     Indication: HODGKIN'S DISEASE STAGE III
     Dosage: 210 MG,
     Dates: start: 20060110
  3. ERYTHROPOIETIN             (ERYTHROPOIETIN) [Suspect]
     Indication: HODGKIN'S DISEASE STAGE III
     Dates: start: 20060101
  4. NATULAN            (PROCARBAZINE HYDROCHLORIDE) [Suspect]
     Indication: HODGKIN'S DISEASE STAGE III
     Dosage: 200 MG,
     Dates: start: 20060110
  5. CYCLOPHOSPHAMIDE [Suspect]
     Indication: HODGKIN'S DISEASE STAGE III
     Dosage: 1400 MG,
     Dates: start: 20060110
  6. PREDNISOLONE [Suspect]
     Indication: HODGKIN'S DISEASE STAGE III
     Dosage: 170 MG, ORAL
     Route: 048
     Dates: start: 20060101
  7. NEUPOGEN [Concomitant]

REACTIONS (2)
  - ACUTE MYOCARDIAL INFARCTION [None]
  - VENTRICULAR FIBRILLATION [None]
